FAERS Safety Report 24089879 (Version 1)
Quarter: 2024Q3

REPORT INFORMATION
  Report Type: Spontaneous
  Country: BE (occurrence: BE)
  Receive Date: 20240715
  Receipt Date: 20240715
  Transmission Date: 20241017
  Serious: Yes (Hospitalization)
  Sender: CHEPLAPHARM
  Company Number: BE-ROCHE-10000018145

PATIENT
  Age: 60 Year
  Sex: Male
  Weight: 82 kg

DRUGS (6)
  1. CAPECITABINE [Suspect]
     Active Substance: CAPECITABINE
     Indication: Palmar-plantar erythrodysaesthesia syndrome
  2. CAPECITABINE [Suspect]
     Active Substance: CAPECITABINE
     Indication: Colorectal cancer
  3. CAPECITABINE [Suspect]
     Active Substance: CAPECITABINE
     Indication: Colon cancer metastatic
  4. SORAFENIB [Suspect]
     Active Substance: SORAFENIB
     Indication: Colon cancer metastatic
  5. SORAFENIB [Suspect]
     Active Substance: SORAFENIB
     Indication: Palmar-plantar erythrodysaesthesia syndrome
  6. SORAFENIB [Suspect]
     Active Substance: SORAFENIB
     Indication: Colorectal cancer

REACTIONS (3)
  - Abscess rupture [Unknown]
  - Abdominal abscess [Unknown]
  - Off label use [Unknown]

NARRATIVE: CASE EVENT DATE: 20111022
